FAERS Safety Report 5773927-6 (Version None)
Quarter: 2008Q2

REPORT INFORMATION
  Report Type: 
  Country: None (occurrence: None)
  Receive Date: 20080616
  Receipt Date: 20080606
  Transmission Date: 20081010
  Serious: Yes (Hospitalization)
  Sender: FDA-Public Use
  Company Number: B0524883A

PATIENT
  Age: 28 Year
  Sex: Female
  Weight: 67 kg

DRUGS (6)
  1. ZINAT [Suspect]
     Dosage: 250MG TWICE PER DAY
     Route: 048
     Dates: end: 20080327
  2. COCAINE [Suspect]
     Indication: DRUG USE FOR UNKNOWN INDICATION
     Route: 045
  3. MOTILIUM [Concomitant]
     Indication: INFLUENZA
     Route: 048
  4. PRETUVAL [Concomitant]
     Route: 048
  5. CANNABIS [Concomitant]
     Route: 065
  6. ALCOHOL [Concomitant]
     Route: 065

REACTIONS (13)
  - AMNESIA [None]
  - ANURIA [None]
  - CHROMATURIA [None]
  - CIRCULATORY COLLAPSE [None]
  - HEPATIC ENZYME INCREASED [None]
  - INFLAMMATION [None]
  - INJURY [None]
  - MEMORY IMPAIRMENT [None]
  - OEDEMA PERIPHERAL [None]
  - RENAL FAILURE ACUTE [None]
  - RENAL TUBULAR NECROSIS [None]
  - THROMBOCYTOPENIA [None]
  - VOMITING [None]
